FAERS Safety Report 7282606-8 (Version None)
Quarter: 2011Q1

REPORT INFORMATION
  Report Type: 
  Country: None (occurrence: None)
  Receive Date: 20110209
  Receipt Date: 20110201
  Transmission Date: 20110831
  Serious: Yes (Other)
  Sender: FDA-Public Use
  Company Number: US-PFIZER INC-2011023522

PATIENT
  Sex: Male
  Weight: 79 kg

DRUGS (11)
  1. GABAPENTIN [Concomitant]
     Indication: PAIN IN EXTREMITY
  2. LIPITOR [Suspect]
     Indication: BLOOD CHOLESTEROL INCREASED
     Dosage: UNK, DAILY
     Route: 048
     Dates: end: 20070101
  3. LOVASTATIN [Suspect]
     Indication: BLOOD CHOLESTEROL INCREASED
     Dosage: UNK, DAILY
     Route: 048
  4. SIMVASTATIN [Suspect]
     Indication: BLOOD CHOLESTEROL INCREASED
     Dosage: UNK, DAILY
     Route: 048
  5. OMEPRAZOLE [Concomitant]
     Indication: DYSPEPSIA
     Dosage: UNK
  6. IBUPROFEN [Concomitant]
     Indication: PAIN IN EXTREMITY
  7. GABAPENTIN [Concomitant]
     Indication: MYALGIA
     Dosage: UNK
  8. IBUPROFEN [Concomitant]
  9. GABAPENTIN [Concomitant]
  10. ACETYLSALICYLIC ACID [Concomitant]
     Indication: CARDIAC DISORDER
     Dosage: UNK
  11. IBUPROFEN [Concomitant]
     Indication: MYALGIA
     Dosage: 1800 MG, UNK

REACTIONS (1)
  - DEPRESSION [None]
